FAERS Safety Report 23410647 (Version 2)
Quarter: 2025Q1

REPORT INFORMATION
  Report Type: Spontaneous
  Country: US (occurrence: US)
  Receive Date: 20240117
  Receipt Date: 20250312
  Transmission Date: 20250409
  Serious: Yes (Hospitalization)
  Sender: SK LIFE SCIENCE
  Company Number: US-SK LIFE SCIENCE, INC-SKPVG-2022-000942

PATIENT

DRUGS (5)
  1. XCOPRI [Suspect]
     Active Substance: CENOBAMATE
     Indication: Epilepsy
     Route: 065
  2. XCOPRI [Suspect]
     Active Substance: CENOBAMATE
     Indication: Cerebral palsy
     Dosage: 1 PILL EVERY NIGHT
     Route: 048
     Dates: start: 202209
  3. XCOPRI [Suspect]
     Active Substance: CENOBAMATE
     Indication: Product used for unknown indication
     Dosage: 150 MILLIGRAM, QD
     Route: 065
     Dates: start: 20221111, end: 20221211
  4. XCOPRI [Suspect]
     Active Substance: CENOBAMATE
     Dosage: 1 PILL EVERY NIGHT
     Route: 048
     Dates: end: 20230509
  5. XCOPRI [Suspect]
     Active Substance: CENOBAMATE
     Dosage: 100 MILLIGRAM, QD
     Route: 065

REACTIONS (6)
  - Hospitalisation [Unknown]
  - Product use in unapproved indication [Not Recovered/Not Resolved]
  - Product use issue [Recovered/Resolved]
  - Seizure [Unknown]
  - Product use issue [Recovered/Resolved]
  - Product use issue [Not Recovered/Not Resolved]

NARRATIVE: CASE EVENT DATE: 20221212
